FAERS Safety Report 6580051-1 (Version None)
Quarter: 2010Q1

REPORT INFORMATION
  Report Type: 
  Country: None (occurrence: None)
  Receive Date: 20100212
  Receipt Date: 20100201
  Transmission Date: 20100710
  Serious: Yes (Hospitalization, Other)
  Sender: FDA-Public Use
  Company Number: CA-WATSON-2010-01316

PATIENT
  Age: 54 Year
  Sex: Male

DRUGS (1)
  1. METRONIDAZOLE [Suspect]
     Indication: BRONCHIECTASIS
     Dosage: 60 G, CUMULATIVE DOSE

REACTIONS (5)
  - CEREBELLAR ATAXIA [None]
  - CEREBELLAR SYNDROME [None]
  - DYSARTHRIA [None]
  - GAIT DISTURBANCE [None]
  - GRAND MAL CONVULSION [None]
